FAERS Safety Report 8896369 (Version 2)
Quarter: 2013Q1

REPORT INFORMATION
  Report Type: Spontaneous
  Country: US (occurrence: None)
  Receive Date: 20121031
  Receipt Date: 20121120
  Transmission Date: 20140127
  Serious: Yes (Hospitalization)
  Sender: FDA-Public Use
  Company Number: IMP_06046_2012

PATIENT
  Age: 58 Year
  Sex: Female

DRUGS (1)
  1. CABERGOLINE [Suspect]
     Indication: PITUITARY TUMOUR BENIGN

REACTIONS (12)
  - Nephrolithiasis [None]
  - Hyperparathyroidism [None]
  - Oesophageal rupture [None]
  - Post-traumatic stress disorder [None]
  - Insulin-like growth factor increased [None]
  - Rhinorrhoea [None]
  - Vision blurred [None]
  - Pneumocephalus [None]
  - Hypotension [None]
  - Tachycardia [None]
  - Horner^s syndrome [None]
  - VIth nerve paralysis [None]
